FAERS Safety Report 8269650-9 (Version None)
Quarter: 2012Q2

REPORT INFORMATION
  Report Type: 
  Country: None (occurrence: None)
  Receive Date: 20120410
  Receipt Date: 20120404
  Transmission Date: 20120825
  Serious: No
  Sender: FDA-Public Use
  Company Number: US-BIOGENIDEC-2012BI011738

PATIENT
  Sex: Female

DRUGS (1)
  1. AVONEX [Suspect]
     Indication: MULTIPLE SCLEROSIS
     Route: 030
     Dates: start: 20030206

REACTIONS (8)
  - TYPE 2 DIABETES MELLITUS [None]
  - CONSTIPATION [None]
  - RED BLOOD CELL COUNT DECREASED [None]
  - HYPERTENSION [None]
  - ABASIA [None]
  - DRY MOUTH [None]
  - DIARRHOEA [None]
  - PYREXIA [None]
